FAERS Safety Report 18378803 (Version 1)
Quarter: 2020Q4

REPORT INFORMATION
  Report Type: Spontaneous
  Country: IT (occurrence: IT)
  Receive Date: 20201013
  Receipt Date: 20201013
  Transmission Date: 20210114
  Serious: Yes (Other)
  Sender: FDA-Public Use
  Company Number: IT-MYLANLABS-2020M1085737

PATIENT
  Age: 33 Year
  Sex: Female
  Weight: 63 kg

DRUGS (4)
  1. CHLORPHENAMINE [Concomitant]
     Active Substance: CHLORPHENIRAMINE MALEATE
     Dosage: 10 MILLIGRAM, TOTAL
     Route: 042
     Dates: start: 20200929, end: 20200929
  2. OMEPRAZOLE. [Concomitant]
     Active Substance: OMEPRAZOLE
     Dosage: 20 MILLIGRAM, TOTAL
     Route: 042
     Dates: start: 20200829, end: 20200929
  3. PACLITAXEL. [Suspect]
     Active Substance: PACLITAXEL
     Indication: BREAST NEOPLASM
     Dosage: 130 MILLIGRAM, TOTAL
     Route: 042
     Dates: start: 20200929, end: 20200929
  4. DEXAMETHASONE. [Concomitant]
     Active Substance: DEXAMETHASONE
     Dosage: 8 MILLIGRAM, TOTAL
     Route: 042
     Dates: start: 20200929, end: 20200929

REACTIONS (4)
  - Depressed level of consciousness [Recovered/Resolved]
  - Feeling hot [Recovered/Resolved]
  - Confusional state [Recovered/Resolved]
  - Cough [Recovered/Resolved]

NARRATIVE: CASE EVENT DATE: 20200929
